FAERS Safety Report 9256194 (Version 1)
Quarter: 2013Q2

REPORT INFORMATION
  Report Type: Spontaneous
  Country: US (occurrence: US)
  Receive Date: 20130425
  Receipt Date: 20130425
  Transmission Date: 20140414
  Serious: No
  Sender: FDA-Public Use
  Company Number: US-AMGEN-USASP2012067109

PATIENT
  Age: 70 Year
  Sex: Female
  Weight: 81.3 kg

DRUGS (6)
  1. NEULASTA [Suspect]
     Indication: OVARIAN CANCER
     Dosage: 6 MG, ONE TIME DOSE
     Route: 023
     Dates: start: 20121018, end: 20121018
  2. AMLODIPINE [Concomitant]
     Indication: HYPERTENSION
     Dosage: 10 MG, QD
     Route: 048
  3. DONEPEZIL [Concomitant]
     Indication: DEMENTIA ALZHEIMER^S TYPE
     Dosage: 10 MG, QD
     Route: 048
  4. LISINOPRIL [Concomitant]
     Indication: HYPERTENSION
     Dosage: 10 MG, QD
     Route: 048
  5. SERTRALINE [Concomitant]
     Dosage: 50 MG, QD
     Route: 048
  6. ANASTROZOLE [Concomitant]
     Indication: BREAST CANCER
     Dosage: 1 MG, QD
     Route: 048

REACTIONS (2)
  - Incorrect route of drug administration [Unknown]
  - Injection site mass [Recovered/Resolved]
